FAERS Safety Report 6876424-X (Version None)
Quarter: 2010Q3

REPORT INFORMATION
  Report Type: 
  Country: None (occurrence: None)
  Receive Date: 20100727
  Receipt Date: 20070702
  Transmission Date: 20110219
  Serious: Yes (Hospitalization)
  Sender: FDA-Public Use
  Company Number: US-PFIZER INC-2006111070

PATIENT
  Sex: Female

DRUGS (4)
  1. CELEBREX [Suspect]
     Indication: ARTHRITIS
     Route: 048
     Dates: start: 20020207
  2. VIOXX [Suspect]
     Indication: ARTHRITIS
     Route: 048
     Dates: start: 20020711, end: 20040930
  3. ACCUPRIL [Concomitant]
     Dates: start: 20000101
  4. LIPITOR [Concomitant]
     Dates: start: 20000101

REACTIONS (1)
  - MYOCARDIAL INFARCTION [None]
